FAERS Safety Report 19678426 (Version 1)
Quarter: 2021Q3

REPORT INFORMATION
  Report Type: Spontaneous
  Country: CO (occurrence: CO)
  Receive Date: 20210810
  Receipt Date: 20210810
  Transmission Date: 20211014
  Serious: Yes (Hospitalization, Other)
  Sender: FDA-Public Use
  Company Number: CO-NOVOPROD-835446

PATIENT
  Age: 30 Year
  Sex: Male

DRUGS (5)
  1. NOVOSEVEN RT [Suspect]
     Active Substance: COAGULATION FACTOR VIIA RECOMBINANT HUMAN
     Dosage: 120 ?G/KG, SINGLE
     Route: 065
     Dates: start: 20210728
  2. EMICIZUMAB. [Concomitant]
     Active Substance: EMICIZUMAB
     Indication: PRODUCT USED FOR UNKNOWN INDICATION
     Dosage: UNK
     Route: 065
  3. NOVOSEVEN RT [Suspect]
     Active Substance: COAGULATION FACTOR VIIA RECOMBINANT HUMAN
     Indication: HAEMOPHILIA A WITH ANTI FACTOR VIII
     Dosage: 120 ?G/KG, SINGLE
     Route: 065
     Dates: start: 20210727
  4. NOVOSEVEN RT [Suspect]
     Active Substance: COAGULATION FACTOR VIIA RECOMBINANT HUMAN
     Dosage: 120 ?G/KG, 90 ?G/KG EVERY 4H AND CURRENTLY DOSE REDUCED TO 45 ?G/KG EVERY 6H
     Route: 065
     Dates: start: 20210729
  5. EMICIZUMAB. [Concomitant]
     Active Substance: EMICIZUMAB
     Dosage: 150 MG FREQUENCY: EVERY 15 DAYS
     Route: 065

REACTIONS (1)
  - Ischaemic stroke [Not Recovered/Not Resolved]

NARRATIVE: CASE EVENT DATE: 20210729
